FAERS Safety Report 19948736 (Version 1)
Quarter: 2021Q4

REPORT INFORMATION
  Report Type: Spontaneous
  Country: US (occurrence: US)
  Receive Date: 20211008
  Receipt Date: 20211008
  Transmission Date: 20220303
  Serious: Yes (Hospitalization)
  Sender: FDA-Public Use
  Company Number: None

PATIENT
  Age: 80 Year
  Sex: Male

DRUGS (1)
  1. ABIRATERONE [Suspect]
     Active Substance: ABIRATERONE
     Route: 048
     Dates: start: 201807

REACTIONS (4)
  - Diverticulum [None]
  - Rectal haemorrhage [None]
  - Blood iron decreased [None]
  - Blood electrolytes decreased [None]

NARRATIVE: CASE EVENT DATE: 20211002
